FAERS Safety Report 18729249 (Version 1)
Quarter: 2021Q1

REPORT INFORMATION
  Report Type: Spontaneous
  Country: US (occurrence: US)
  Receive Date: 20210111
  Receipt Date: 20210111
  Transmission Date: 20210419
  Serious: Yes (Hospitalization)
  Sender: FDA-Public Use
  Company Number: None

PATIENT
  Age: 71 Year
  Sex: Female

DRUGS (10)
  1. PROGRAF [Concomitant]
     Active Substance: TACROLIMUS
  2. FEXOFENADINE [Concomitant]
     Active Substance: FEXOFENADINE HYDROCHLORIDE
  3. TACROLIMUS 0.5MG CAP [Suspect]
     Active Substance: TACROLIMUS
     Indication: RENAL TRANSPLANT
     Dosage: OTHER DOSE:1 CAP? 2 CAPS; QOD PO ? ALTERNATING?
     Route: 048
     Dates: start: 20140319
  4. ZINC. [Concomitant]
     Active Substance: ZINC
  5. PREDNISONE. [Concomitant]
     Active Substance: PREDNISONE
  6. METRONIDAZOL [Concomitant]
     Active Substance: METRONIDAZOLE
  7. MZ/TMP DS [Concomitant]
  8. BIOTIN [Concomitant]
     Active Substance: BIOTIN
  9. AMLODIPINE [Concomitant]
     Active Substance: AMLODIPINE BESYLATE
  10. CALCITRIOL. [Concomitant]
     Active Substance: CALCITRIOL

REACTIONS (1)
  - Hypersensitivity [None]

NARRATIVE: CASE EVENT DATE: 20201230
